FAERS Safety Report 12935832 (Version 4)
Quarter: 2017Q1

REPORT INFORMATION
  Report Type: Spontaneous
  Country: US (occurrence: US)
  Receive Date: 20161114
  Receipt Date: 20170217
  Transmission Date: 20170428
  Serious: Yes (Hospitalization, Other)
  Sender: FDA-Public Use
  Company Number: PHEH2016US029523

PATIENT
  Sex: Female

DRUGS (3)
  1. LENVATINIB [Suspect]
     Active Substance: LENVATINIB
     Indication: RENAL CELL CARCINOMA
     Dosage: 18 MG, QD
     Route: 048
     Dates: start: 20161004
  2. AFINITOR [Suspect]
     Active Substance: EVEROLIMUS
     Indication: RENAL CELL CARCINOMA
     Dosage: 5 MG, QD
     Route: 048
     Dates: start: 20161004
  3. LENVATINIB [Suspect]
     Active Substance: LENVATINIB
     Dosage: 18 MG, QD
     Route: 048
     Dates: start: 20161221

REACTIONS (16)
  - Internal haemorrhage [Not Recovered/Not Resolved]
  - Gastrointestinal neoplasm [Recovering/Resolving]
  - Post procedural complication [Recovering/Resolving]
  - Abdominal pain upper [Unknown]
  - Cough [Not Recovered/Not Resolved]
  - Gastrointestinal perforation [Recovering/Resolving]
  - Blood potassium increased [Unknown]
  - Insomnia [Recovering/Resolving]
  - Haemorrhoids [Not Recovered/Not Resolved]
  - Vulvovaginal burning sensation [Not Recovered/Not Resolved]
  - Vulvovaginal pruritus [Not Recovered/Not Resolved]
  - Abdominal tenderness [Not Recovered/Not Resolved]
  - Neoplasm [Not Recovered/Not Resolved]
  - Vulvovaginal pain [Not Recovered/Not Resolved]
  - Asthenia [Unknown]
  - Headache [Unknown]
